FAERS Safety Report 14294115 (Version 1)
Quarter: 2017Q4

REPORT INFORMATION
  Report Type: Spontaneous
  Country: DE (occurrence: DE)
  Receive Date: 20171217
  Receipt Date: 20171217
  Transmission Date: 20180321
  Serious: Yes (Hospitalization)
  Sender: FDA-Public Use
  Company Number: DE-MYLANLABS-2017M1077427

PATIENT
  Age: 73 Year
  Sex: Female

DRUGS (15)
  1. CORTISONE [Concomitant]
     Active Substance: CORTISONE\HYDROCORTISONE
     Dosage: 5 UNK, UNK
     Dates: start: 20171114
  2. CYCLOPHOSPHAMIDE. [Concomitant]
     Active Substance: CYCLOPHOSPHAMIDE
     Indication: CONDITION AGGRAVATED
  3. CORTISONE [Concomitant]
     Active Substance: CORTISONE\HYDROCORTISONE
     Dosage: 5 MG, UNK
     Dates: start: 20171025
  4. VITAMIN D                          /00107901/ [Concomitant]
     Active Substance: ERGOCALCIFEROL
     Indication: PRODUCT USED FOR UNKNOWN INDICATION
     Dosage: UNK
     Dates: start: 20171025
  5. AZATHIOPRIN DURA N 50 MG FILMTABLETTEN [Suspect]
     Active Substance: AZATHIOPRINE
     Dosage: 50 MG, BID
     Dates: start: 20171108, end: 20171118
  6. PREDNIFLUID [Concomitant]
     Indication: EPISCLERITIS
     Dosage: UNK
     Dates: start: 2017
  7. AZATHIOPRIN DURA N 50 MG FILMTABLETTEN [Suspect]
     Active Substance: AZATHIOPRINE
     Indication: VASCULITIS
     Dosage: 50 MG, UNK
     Dates: start: 20171025, end: 20171107
  8. AZATHIOPRIN DURA N 50 MG FILMTABLETTEN [Suspect]
     Active Substance: AZATHIOPRINE
     Dosage: UNK
  9. HYLO-COMOD [Concomitant]
     Active Substance: HYALURONATE SODIUM
     Indication: EPISCLERITIS
     Dosage: UNK
     Dates: start: 2017
  10. RITUXIMAB. [Concomitant]
     Active Substance: RITUXIMAB
     Indication: CONDITION AGGRAVATED
  11. VOLTAREN [Concomitant]
     Active Substance: DICLOFENAC SODIUM
     Indication: EPISCLERITIS
     Dosage: UNK
     Dates: start: 2017
  12. ACICLOVIR [Concomitant]
     Active Substance: ACYCLOVIR
     Indication: EPISCLERITIS
     Dosage: UNK
     Dates: start: 2017
  13. CORTISONE [Concomitant]
     Active Substance: CORTISONE\HYDROCORTISONE
     Indication: PRODUCT USED FOR UNKNOWN INDICATION
     Dosage: 5 MG, UNK
     Dates: start: 20170201
  14. CORTISONE [Concomitant]
     Active Substance: CORTISONE\HYDROCORTISONE
     Dosage: 60 MG, UNK
     Dates: start: 20171111
  15. PREDNISOLONE. [Concomitant]
     Active Substance: PREDNISOLONE
     Indication: PRODUCT USED FOR UNKNOWN INDICATION
     Dosage: 5 MG, UNK

REACTIONS (13)
  - Musculoskeletal stiffness [Unknown]
  - Back pain [Unknown]
  - Rash macular [Unknown]
  - Hypoaesthesia [Not Recovered/Not Resolved]
  - Chills [Unknown]
  - Pain in extremity [Unknown]
  - Peripheral coldness [Unknown]
  - Insomnia [Unknown]
  - Paraesthesia [Unknown]
  - Muscular weakness [Not Recovered/Not Resolved]
  - Livedo reticularis [Unknown]
  - Anxiety [Unknown]
  - Skin discolouration [Unknown]

NARRATIVE: CASE EVENT DATE: 20171025
